FAERS Safety Report 13526524 (Version 1)
Quarter: 2017Q2

REPORT INFORMATION
  Report Type: Spontaneous
  Country: US (occurrence: US)
  Receive Date: 20170508
  Receipt Date: 20170508
  Transmission Date: 20170830
  Serious: Yes (Disabling)
  Sender: FDA-Public Use
  Company Number: None

PATIENT
  Age: 57 Year
  Sex: Female
  Weight: 69.75 kg

DRUGS (18)
  1. DUO-NEB [Concomitant]
  2. POTASSIUM [Concomitant]
     Active Substance: POTASSIUM
  3. OMEGA 3 [Concomitant]
     Active Substance: OMEGA-3 FATTY ACIDS
  4. ONE A DAY MULTI FOR WOMEN [Concomitant]
     Active Substance: MINERALS\VITAMINS
  5. SYMBICORT [Concomitant]
     Active Substance: BUDESONIDE\FORMOTEROL FUMARATE DIHYDRATE
  6. VITAMIN C [Concomitant]
     Active Substance: ASCORBIC ACID
  7. LASIX [Concomitant]
     Active Substance: FUROSEMIDE
  8. PAXIL [Concomitant]
     Active Substance: PAROXETINE HYDROCHLORIDE
  9. LEVAQUIN [Suspect]
     Active Substance: LEVOFLOXACIN
     Indication: CHRONIC OBSTRUCTIVE PULMONARY DISEASE
     Dosage: ?          QUANTITY:10 CAPSULE(S);?
     Route: 048
     Dates: start: 20161110, end: 20161119
  10. THEO 24 [Concomitant]
  11. CALCIUM/MAGNESIUM/ZINC [Concomitant]
  12. VITAMIN D [Concomitant]
     Active Substance: CHOLECALCIFEROL
  13. HRT [Concomitant]
     Active Substance: UNSPECIFIED INGREDIENT
  14. OMEGA 9 [Concomitant]
  15. TRAMADOL. [Concomitant]
     Active Substance: TRAMADOL
  16. SPIRIIVA [Concomitant]
  17. NURONTIN [Concomitant]
  18. OMEGA 6 FATTY ACIDS [Concomitant]
     Active Substance: OMEGA-6 FATTY ACIDS

REACTIONS (8)
  - Tendon pain [None]
  - Decreased appetite [None]
  - Neuropathy peripheral [None]
  - Fatigue [None]
  - Joint stiffness [None]
  - Hypoaesthesia [None]
  - Rash [None]
  - Weight decreased [None]

NARRATIVE: CASE EVENT DATE: 20161118
